FAERS Safety Report 24371462 (Version 1)
Quarter: 2024Q3

REPORT INFORMATION
  Report Type: Spontaneous
  Country: TW (occurrence: TW)
  Receive Date: 20240927
  Receipt Date: 20240927
  Transmission Date: 20241016
  Serious: Yes (Other)
  Sender: QUAGEN PHARMACEUTICALS
  Company Number: TW-QUAGEN-2024QUALIT00306

PATIENT
  Age: 3 Year
  Sex: Female
  Weight: 13.6 kg

DRUGS (3)
  1. LIDOCAINE [Suspect]
     Active Substance: LIDOCAINE
     Indication: Induction of anaesthesia
     Route: 065
  2. PROPOFOL [Suspect]
     Active Substance: PROPOFOL
     Indication: Induction of anaesthesia
     Route: 065
  3. SEVOFLURANE [Suspect]
     Active Substance: SEVOFLURANE
     Indication: Maintenance of anaesthesia
     Route: 065

REACTIONS (1)
  - Hyperthermia malignant [Recovering/Resolving]
